FAERS Safety Report 15841170 (Version 1)
Quarter: 2019Q1

REPORT INFORMATION
  Report Type: Spontaneous
  Country: US (occurrence: US)
  Receive Date: 20190118
  Receipt Date: 20190118
  Transmission Date: 20190417
  Serious: Yes (Other)
  Sender: FDA-Public Use
  Company Number: US-AMGEN-USASP2019008037

PATIENT
  Age: 26 Year
  Sex: Male

DRUGS (5)
  1. PRAZIQUANTEL. [Concomitant]
     Active Substance: PRAZIQUANTEL
     Dosage: UNK
  2. ETANERCEPT [Suspect]
     Active Substance: ETANERCEPT
     Indication: INFLAMMATION
     Dosage: 25 MG, QWK
     Route: 065
  3. ETANERCEPT [Suspect]
     Active Substance: ETANERCEPT
     Dosage: 25 MG, QWK
     Route: 065
  4. METHOTREXATE. [Concomitant]
     Active Substance: METHOTREXATE
     Dosage: UNK
  5. ALBENDAZOLE. [Concomitant]
     Active Substance: ALBENDAZOLE
     Dosage: UNK

REACTIONS (3)
  - Off label use [Unknown]
  - Hydrocephalus [Unknown]
  - Shunt malfunction [Unknown]
